FAERS Safety Report 25818566 (Version 5)
Quarter: 2025Q4

REPORT INFORMATION
  Report Type: Report from Study
  Country: EU (occurrence: EU)
  Receive Date: 20250918
  Receipt Date: 20251205
  Transmission Date: 20260118
  Serious: Yes (Hospitalization, Other)
  Sender: PHARMING GROUP
  Company Number: EU-PHARMING-PHAES2025001311

PATIENT

DRUGS (6)
  1. LENIOLISIB PHOSPHATE [Suspect]
     Active Substance: LENIOLISIB PHOSPHATE
     Indication: Immunodeficiency common variable
     Dosage: 70 MILLIGRAM, BID
     Dates: start: 20250423, end: 20250910
  2. LENIOLISIB PHOSPHATE [Suspect]
     Active Substance: LENIOLISIB PHOSPHATE
     Dosage: 30 MILLIGRAM, BID
     Dates: start: 20251022, end: 20251029
  3. LENIOLISIB PHOSPHATE [Suspect]
     Active Substance: LENIOLISIB PHOSPHATE
     Dosage: 70 MILLIGRAM, BID
     Dates: start: 20251029, end: 20251113
  4. LENIOLISIB PHOSPHATE [Suspect]
     Active Substance: LENIOLISIB PHOSPHATE
     Dosage: 70 MILLIGRAM, BID
     Dates: start: 20251029, end: 20251113
  5. LENIOLISIB PHOSPHATE [Suspect]
     Active Substance: LENIOLISIB PHOSPHATE
     Dosage: 30 MILLIGRAM, BID
     Route: 048
     Dates: start: 20251114, end: 20251121
  6. HUMAN IMMUNOGLOBULIN G [Concomitant]
     Active Substance: HUMAN IMMUNOGLOBULIN G
     Indication: Product used for unknown indication
     Dosage: 1 G/KG
     Dates: start: 2025

REACTIONS (10)
  - Febrile neutropenia [Not Recovered/Not Resolved]
  - Hypokalaemia [Recovered/Resolved]
  - COVID-19 [Recovered/Resolved]
  - Escherichia bacteraemia [Recovered/Resolved]
  - Spontaneous bacterial peritonitis [Unknown]
  - Klebsiella bacteraemia [Recovered/Resolved]
  - Clostridium difficile colitis [Unknown]
  - Staphylococcal bacteraemia [Recovered/Resolved]
  - Hyperglycaemia [Recovering/Resolving]
  - Otitis media [Unknown]

NARRATIVE: CASE EVENT DATE: 20250101
